FAERS Safety Report 9156381 (Version 1)
Quarter: 2013Q1

REPORT INFORMATION
  Report Type: Spontaneous
  Country: US (occurrence: None)
  Receive Date: 20130308
  Receipt Date: 20130308
  Transmission Date: 20140127
  Serious: Yes (Other)
  Sender: FDA-Public Use
  Company Number: None

PATIENT
  Age: 21 Year
  Sex: Female
  Weight: 58.97 kg

DRUGS (1)
  1. MEDERMA [Suspect]
     Indication: SKIN STRIAE
     Dosage: TIN COAT 2X DAY
     Dates: start: 20130110, end: 20130201

REACTIONS (1)
  - Skin disorder [None]
